FAERS Safety Report 25531142 (Version 1)
Quarter: 2025Q3

REPORT INFORMATION
  Report Type: Spontaneous
  Country: SG (occurrence: SG)
  Receive Date: 20250708
  Receipt Date: 20250708
  Transmission Date: 20251020
  Serious: Yes (Other)
  Sender: SANOFI AVENTIS
  Company Number: SG-SA-2025SA190800

PATIENT
  Sex: Female

DRUGS (1)
  1. DOCETAXEL [Suspect]
     Active Substance: DOCETAXEL
     Route: 042

REACTIONS (4)
  - Feeling hot [Unknown]
  - Dyspnoea [Unknown]
  - Chest discomfort [Unknown]
  - Flushing [Unknown]
